FAERS Safety Report 25037833 (Version 1)
Quarter: 2025Q1

REPORT INFORMATION
  Report Type: Spontaneous
  Country: FR (occurrence: FR)
  Receive Date: 20250304
  Receipt Date: 20250304
  Transmission Date: 20250409
  Serious: Yes (Other)
  Sender: MYLAN
  Company Number: None

PATIENT
  Age: 34 Year
  Sex: Male

DRUGS (12)
  1. LYRICA [Suspect]
     Active Substance: PREGABALIN
     Indication: Product used for unknown indication
     Dosage: 900 MILLIGRAM, QD
  2. LYRICA [Suspect]
     Active Substance: PREGABALIN
     Dosage: 900 MILLIGRAM, QD
     Route: 048
  3. LYRICA [Suspect]
     Active Substance: PREGABALIN
     Dosage: 900 MILLIGRAM, QD
     Route: 048
  4. LYRICA [Suspect]
     Active Substance: PREGABALIN
     Dosage: 900 MILLIGRAM, QD
  5. COCAINE [Suspect]
     Active Substance: COCAINE
     Indication: Product used for unknown indication
  6. COCAINE [Suspect]
     Active Substance: COCAINE
     Route: 045
  7. COCAINE [Suspect]
     Active Substance: COCAINE
     Route: 045
  8. COCAINE [Suspect]
     Active Substance: COCAINE
  9. RIVOTRIL [Suspect]
     Active Substance: CLONAZEPAM
     Indication: Product used for unknown indication
     Dosage: 8 MILLIGRAM, QD, BETWEEN 4 TO 14MG PER DAY
  10. RIVOTRIL [Suspect]
     Active Substance: CLONAZEPAM
     Dosage: 8 MILLIGRAM, QD, BETWEEN 4 TO 14MG PER DAY
     Route: 048
  11. RIVOTRIL [Suspect]
     Active Substance: CLONAZEPAM
     Dosage: 8 MILLIGRAM, QD, BETWEEN 4 TO 14MG PER DAY
     Route: 048
  12. RIVOTRIL [Suspect]
     Active Substance: CLONAZEPAM
     Dosage: 8 MILLIGRAM, QD, BETWEEN 4 TO 14MG PER DAY

REACTIONS (2)
  - Hallucination, auditory [Not Recovered/Not Resolved]
  - Substance use disorder [Not Recovered/Not Resolved]

NARRATIVE: CASE EVENT DATE: 20240114
